FAERS Safety Report 24638010 (Version 2)
Quarter: 2024Q4

REPORT INFORMATION
  Report Type: Spontaneous
  Country: US (occurrence: US)
  Receive Date: 20241119
  Receipt Date: 20241121
  Transmission Date: 20250115
  Serious: Yes (Other)
  Sender: PFIZER
  Company Number: US-PFIZER INC-PV202400149477

PATIENT
  Age: 84 Year
  Sex: Male
  Weight: 75 kg

DRUGS (4)
  1. VYNDAQEL [Suspect]
     Active Substance: TAFAMIDIS MEGLUMINE
     Indication: Acquired ATTR amyloidosis
     Dosage: TAKE 4 CAPSULES BY MOUTH 1 (ONE) TIME EACH DAY
     Route: 048
     Dates: start: 20240327
  2. VYNDAQEL [Suspect]
     Active Substance: TAFAMIDIS MEGLUMINE
     Indication: Cardiac failure
  3. VYNDAQEL [Suspect]
     Active Substance: TAFAMIDIS MEGLUMINE
     Indication: Hepatocellular carcinoma
  4. JARDIANCE [Concomitant]
     Active Substance: EMPAGLIFLOZIN
     Dosage: 10 MG, DAILY

REACTIONS (4)
  - Blood creatinine increased [Unknown]
  - Hyperglycaemia [Unknown]
  - Blood urea increased [Unknown]
  - Blood chloride increased [Unknown]
